FAERS Safety Report 7297869-2 (Version None)
Quarter: 2011Q1

REPORT INFORMATION
  Report Type: 
  Country: None (occurrence: None)
  Receive Date: 20110217
  Receipt Date: 20110207
  Transmission Date: 20110831
  Serious: Yes (Hospitalization)
  Sender: FDA-Public Use
  Company Number: JP-SANOFI-AVENTIS-2010SA071736

PATIENT
  Age: 66 Year
  Sex: Male

DRUGS (14)
  1. OXALIPLATIN [Suspect]
     Indication: COLON CANCER
     Route: 041
     Dates: start: 20090113, end: 20090113
  2. FLUOROURACIL [Suspect]
     Route: 041
     Dates: start: 20100309, end: 20100309
  3. ZANTAC [Concomitant]
     Route: 041
     Dates: start: 20100317, end: 20100317
  4. TAKEPRON [Concomitant]
     Route: 042
     Dates: start: 20100310, end: 20100325
  5. MEROPENEM [Concomitant]
     Indication: INFECTION
     Route: 041
     Dates: start: 20100314, end: 20100314
  6. DIAZEPAM [Concomitant]
     Indication: TENSION
     Route: 042
     Dates: start: 20100329, end: 20100406
  7. OXALIPLATIN [Suspect]
     Route: 041
     Dates: start: 20100309, end: 20100309
  8. CALCIUM LEVOFOLINATE [Suspect]
     Route: 041
     Dates: start: 20100309, end: 20100309
  9. FLUOROURACIL [Suspect]
     Indication: COLON CANCER
     Route: 041
     Dates: start: 20090113, end: 20090113
  10. SOLITA T [Concomitant]
     Indication: ELECTROLYTE SUBSTITUTION THERAPY
     Route: 041
     Dates: start: 20100310, end: 20100406
  11. FLUMARIN [Concomitant]
     Indication: INFECTION
     Route: 042
     Dates: start: 20100310, end: 20100310
  12. FENTANYL [Concomitant]
     Indication: PAIN
     Dates: start: 20100316, end: 20100414
  13. CALCIUM LEVOFOLINATE [Suspect]
     Indication: COLON CANCER
     Route: 041
     Dates: start: 20090113, end: 20090113
  14. RED BLOOD CELLS, CONCENTRATED [Concomitant]
     Route: 041
     Dates: start: 20100317, end: 20100318

REACTIONS (1)
  - DUODENAL PERFORATION [None]
